FAERS Safety Report 8941572 (Version 1)
Quarter: 2012Q4

REPORT INFORMATION
  Report Type: 
  Country: US (occurrence: US)
  Receive Date: 20121203
  Receipt Date: 20121203
  Transmission Date: 20130627
  Serious: Yes (Other)
  Sender: FDA-Public Use
  Company Number: US-PFIZER INC-2012301255

PATIENT
  Sex: Male

DRUGS (2)
  1. PRISTIQ [Suspect]
     Indication: MAJOR DEPRESSION
     Dosage: 50 mg, 1x/day
     Route: 048
  2. STRATTERA [Suspect]
     Dosage: 60 mg, UNK

REACTIONS (3)
  - Aggression [Unknown]
  - Irritability [Unknown]
  - Theft [Unknown]
